FAERS Safety Report 17694930 (Version 2)
Quarter: 2020Q3

REPORT INFORMATION
  Report Type: Spontaneous
  Country: CA (occurrence: CA)
  Receive Date: 20200422
  Receipt Date: 20200819
  Transmission Date: 20201102
  Serious: Yes (Other)
  Sender: FDA-Public Use
  Company Number: CA-ANIPHARMA-2020-CA-000436

PATIENT
  Age: 56 Year
  Sex: Female

DRUGS (7)
  1. VITAMIN D [Concomitant]
     Active Substance: VITAMIN D NOS
     Route: 065
  2. IBRANCE [Concomitant]
     Active Substance: PALBOCICLIB
     Dosage: 125 MG FOR 21 DAYS
     Route: 048
     Dates: start: 20170104
  3. ARIMIDEX [Suspect]
     Active Substance: ANASTROZOLE
     Indication: PRODUCT USED FOR UNKNOWN INDICATION
     Route: 048
     Dates: start: 2004
  4. FEMARA [Concomitant]
     Active Substance: LETROZOLE
     Route: 065
     Dates: start: 2011
  5. LETROZOLE. [Concomitant]
     Active Substance: LETROZOLE
     Route: 065
  6. TAMOXIFEN [Suspect]
     Active Substance: TAMOXIFEN
     Dosage: AFTER ARIMIDEX BACK TO TAMOXIFEN DUE TO INTOLERANCES WITH PLAN
     Route: 048
     Dates: end: 2011
  7. VALTREX [Concomitant]
     Active Substance: VALACYCLOVIR HYDROCHLORIDE
     Dosage: FOR SUPPRESSION OF HER SINGLES RASH WHICH IS OVER V2 DISTRIBUTION
     Route: 065

REACTIONS (8)
  - Hot flush [Unknown]
  - Myalgia [Unknown]
  - Decreased activity [Unknown]
  - Herpes zoster [Not Recovered/Not Resolved]
  - Sleep disorder [Unknown]
  - Arthralgia [Unknown]
  - Malignant pleural effusion [Unknown]
  - Disease progression [Unknown]

NARRATIVE: CASE EVENT DATE: 2016
